FAERS Safety Report 4562900-1 (Version None)
Quarter: 2005Q1

REPORT INFORMATION
  Report Type: 
  Country: None (occurrence: None)
  Receive Date: 20050121
  Receipt Date: 20050111
  Transmission Date: 20050727
  Serious: Yes (Hospitalization)
  Sender: FDA-Public Use
  Company Number: 2004AP02785

PATIENT
  Age: 86 Year
  Sex: Male

DRUGS (3)
  1. CASODEX [Suspect]
     Indication: PROSTATE CANCER
     Dosage: 80 MG DAILY PO
     Route: 048
     Dates: start: 20040303, end: 20040331
  2. ZOLADEX [Suspect]
     Indication: PROSTATE CANCER
     Dosage: 3.6 MG Q4WK SQ
     Route: 058
     Dates: start: 20040303, end: 20040331
  3. HONVAN [Suspect]
     Indication: PROSTATE CANCER
     Dosage: 500 MG DAILY
     Dates: start: 20040212, end: 20040302

REACTIONS (6)
  - DYSPNOEA [None]
  - LIVER DISORDER [None]
  - LUNG DISORDER [None]
  - LUNG INFILTRATION [None]
  - OXYGEN SATURATION DECREASED [None]
  - PRODUCTIVE COUGH [None]
